FAERS Safety Report 7809060 (Version 3)
Quarter: 2015Q1

REPORT INFORMATION
  Report Type: Spontaneous
  Country: US (occurrence: US)
  Receive Date: 20110211
  Receipt Date: 20150327
  Transmission Date: 20150721
  Serious: Yes (Other)
  Sender: FDA-Public Use
  Company Number: US-JNJFOC-20110201860

PATIENT
  Sex: Male
  Weight: 84.28 kg

DRUGS (3)
  1. LEVAQUIN [Suspect]
     Active Substance: LEVOFLOXACIN
     Indication: PNEUMONITIS
     Route: 048
  2. LEVAQUIN [Suspect]
     Active Substance: LEVOFLOXACIN
     Indication: INFLUENZA LIKE ILLNESS
     Route: 048
  3. LEVAQUIN [Suspect]
     Active Substance: LEVOFLOXACIN
     Indication: UPPER RESPIRATORY TRACT INFECTION
     Route: 048

REACTIONS (11)
  - Rotator cuff syndrome [Not Recovered/Not Resolved]
  - Chest pain [Unknown]
  - Polyarthritis [Not Recovered/Not Resolved]
  - Deep vein thrombosis [Unknown]
  - Periarthritis [Not Recovered/Not Resolved]
  - Polymyositis [Not Recovered/Not Resolved]
  - Angioedema [Unknown]
  - Neuropathy peripheral [Not Recovered/Not Resolved]
  - Swelling [Unknown]
  - Plantar fasciitis [Unknown]
  - Depression [Not Recovered/Not Resolved]

NARRATIVE: CASE EVENT DATE: 2010
